FAERS Safety Report 4491752-3 (Version None)
Quarter: 2004Q4

REPORT INFORMATION
  Report Type: 
  Country: None (occurrence: None)
  Receive Date: 20041103
  Receipt Date: 20041004
  Transmission Date: 20050328
  Serious: Yes (Hospitalization, Other)
  Sender: FDA-Public Use
  Company Number: CA-MERCK-0410CAN00109

PATIENT
  Age: 70 Year
  Sex: Female

DRUGS (2)
  1. VIOXX [Suspect]
     Indication: OSTEOARTHRITIS
     Route: 048
     Dates: start: 20010101, end: 20030101
  2. VIOXX [Suspect]
     Route: 048
     Dates: start: 20010101, end: 20030101

REACTIONS (2)
  - CEREBROVASCULAR ACCIDENT [None]
  - INFARCTION [None]
